FAERS Safety Report 7910088-9 (Version None)
Quarter: 2011Q4

REPORT INFORMATION
  Report Type: 
  Country: None (occurrence: None)
  Receive Date: 20111111
  Receipt Date: 20111103
  Transmission Date: 20120403
  Serious: Yes (Death, Hospitalization, Other)
  Sender: FDA-Public Use
  Company Number: US-ROCHE-1005947

PATIENT
  Sex: Female

DRUGS (8)
  1. PEMETREXED [Suspect]
     Indication: NON-SMALL CELL LUNG CANCER
  2. TARCEVA [Suspect]
     Dates: start: 20110126
  3. TARCEVA [Suspect]
     Dates: start: 20110302, end: 20110411
  4. TARCEVA [Suspect]
     Indication: NON-SMALL CELL LUNG CANCER
     Route: 048
     Dates: start: 20110112
  5. AVASTIN [Suspect]
     Indication: NON-SMALL CELL LUNG CANCER
     Dates: start: 20110601, end: 20110701
  6. TARCEVA [Suspect]
     Dates: start: 20110204
  7. TAXOL [Concomitant]
  8. CARBOPLATIN [Concomitant]
     Indication: NON-SMALL CELL LUNG CANCER

REACTIONS (7)
  - FALL [None]
  - DIPLOPIA [None]
  - HEADACHE [None]
  - LEUKOENCEPHALOPATHY [None]
  - LEUKODYSTROPHY [None]
  - GAIT DISTURBANCE [None]
  - DISEASE PROGRESSION [None]
